FAERS Safety Report 6454082-6 (Version None)
Quarter: 2009Q4

REPORT INFORMATION
  Report Type: 
  Country: None (occurrence: None)
  Receive Date: 20091124
  Receipt Date: 20091116
  Transmission Date: 20100525
  Serious: Yes (Hospitalization)
  Sender: FDA-Public Use
  Company Number: B0606466A

PATIENT
  Age: 60 Year
  Sex: Male

DRUGS (6)
  1. RANITIDINE [Suspect]
     Dosage: 300MG PER DAY
     Route: 048
     Dates: start: 20090211, end: 20090309
  2. ZOLPIDEM [Suspect]
     Indication: INSOMNIA
     Dosage: 10MG PER DAY
     Route: 048
     Dates: start: 20090211, end: 20090309
  3. PLAVIX [Suspect]
     Indication: THROMBOSIS PROPHYLAXIS
     Dosage: 75MG PER DAY
     Route: 048
     Dates: end: 20090309
  4. RISORDAN [Suspect]
     Dosage: 20MG TWICE PER DAY
     Route: 048
     Dates: end: 20090309
  5. TAREG [Suspect]
     Indication: HYPERTENSION
     Dosage: 40MG PER DAY
     Route: 048
     Dates: end: 20090309
  6. BEFIZAL [Suspect]
     Dosage: 400MG PER DAY
     Route: 048
     Dates: end: 20090309

REACTIONS (7)
  - ASTHENIA [None]
  - ERYTHEMA MULTIFORME [None]
  - LIP DRY [None]
  - RASH ERYTHEMATOUS [None]
  - RASH PRURITIC [None]
  - SKIN FISSURES [None]
  - TOXIC SKIN ERUPTION [None]
